FAERS Safety Report 24011724 (Version 1)
Quarter: 2024Q2

REPORT INFORMATION
  Report Type: Spontaneous
  Country: ES (occurrence: ES)
  Receive Date: 20240625
  Receipt Date: 20240625
  Transmission Date: 20240716
  Serious: Yes (Life-Threatening, Other)
  Sender: FDA-Public Use
  Company Number: None

PATIENT
  Age: 20 Year
  Sex: Female

DRUGS (1)
  1. ACETAMINOPHEN [Suspect]
     Active Substance: ACETAMINOPHEN
     Indication: Product used for unknown indication
     Dosage: 13 GRAM
     Route: 048
     Dates: start: 20240513, end: 20240513

REACTIONS (4)
  - Coagulopathy [Unknown]
  - Suicidal ideation [Unknown]
  - Abdominal pain lower [Unknown]
  - Vomiting [Unknown]

NARRATIVE: CASE EVENT DATE: 20240513
